FAERS Safety Report 6172437-4 (Version None)
Quarter: 2009Q2

REPORT INFORMATION
  Report Type: 
  Country: None (occurrence: None)
  Receive Date: 20090429
  Receipt Date: 20090420
  Transmission Date: 20091009
  Serious: Yes (Disabling)
  Sender: FDA-Public Use
  Company Number: US-SANOFI-SYNTHELABO-A03200900963

PATIENT
  Sex: Male
  Weight: 79.4 kg

DRUGS (8)
  1. AMBIEN [Suspect]
     Indication: SLEEP DISORDER
     Dosage: 1/3 FOR SLEEP AND REPEATED ANOTHER 1/3 IF AWOKE IN THE MIDDLE OF THE NIGHT
     Route: 048
     Dates: start: 20060101, end: 20080101
  2. ZOLPIDEM [Suspect]
     Indication: SLEEP DISORDER
     Dosage: 1/3 FOR SLEEP AND REPEATED ANOTHER 1/3 IF AWOKE IN THE MIDDLE OF THE NIGHT
     Route: 048
     Dates: start: 20080101, end: 20090205
  3. CHLORPHENIRAMINE MALEATE [Concomitant]
     Indication: DRUG USE FOR UNKNOWN INDICATION
     Route: 048
  4. VITAMIN C TIMED RELEASE [Concomitant]
     Indication: DRUG USE FOR UNKNOWN INDICATION
     Route: 048
  5. BIOFLAVINOIDS [Concomitant]
     Indication: DRUG USE FOR UNKNOWN INDICATION
     Route: 065
  6. CENTRUM [Concomitant]
     Indication: DRUG USE FOR UNKNOWN INDICATION
     Route: 048
  7. ALBUTEROL [Concomitant]
     Indication: DRUG USE FOR UNKNOWN INDICATION
     Dosage: 2 PUFFS ONCE OR TWICE A DAY
     Route: 055
  8. ATENOLOL [Concomitant]
     Indication: DRUG USE FOR UNKNOWN INDICATION
     Dosage: 1/2 TO 3/4 OF A 25 MG TAB
     Route: 048

REACTIONS (8)
  - ASTHENIA [None]
  - DEPRESSION [None]
  - DISTURBANCE IN ATTENTION [None]
  - FEELING COLD [None]
  - HYPERHIDROSIS [None]
  - IMMUNODEFICIENCY [None]
  - NASOPHARYNGITIS [None]
  - WRONG TECHNIQUE IN DRUG USAGE PROCESS [None]
